FAERS Safety Report 10195162 (Version 2)
Quarter: 2014Q2

REPORT INFORMATION
  Report Type: Report from Study
  Country: DE (occurrence: DE)
  Receive Date: 20140526
  Receipt Date: 20140604
  Transmission Date: 20141212
  Serious: Yes (Death, Other)
  Sender: FDA-Public Use
  Company Number: DE-ROCHE-1403869

PATIENT
  Sex: 0

DRUGS (7)
  1. RITUXIMAB [Suspect]
     Indication: NON-HODGKIN^S LYMPHOMA
     Route: 042
  2. MYCOPHENOLATE MOFETIL [Suspect]
     Indication: PROPHYLAXIS AGAINST GRAFT VERSUS HOST DISEASE
     Route: 065
  3. FLUDARABINE [Suspect]
     Indication: NON-HODGKIN^S LYMPHOMA
     Dosage: FROM DAY 8 TO DAY 4 BEFORE TRANSPLANTATION
     Route: 065
  4. BUSULFAN [Suspect]
     Indication: NON-HODGKIN^S LYMPHOMA
     Route: 048
  5. BUSULFAN [Suspect]
     Dosage: FROM DAY 6 TO DAY 4
     Route: 042
  6. CYCLOPHOSPHAMIDE [Suspect]
     Indication: NON-HODGKIN^S LYMPHOMA
     Dosage: ON DAY 3 AND DAY 2
     Route: 042
  7. TACROLIMUS [Suspect]
     Indication: PROPHYLAXIS AGAINST GRAFT VERSUS HOST DISEASE
     Dosage: 8-12 UG/L
     Route: 065

REACTIONS (30)
  - Pneumonia [Fatal]
  - Infection [Fatal]
  - Blood bilirubin abnormal [Fatal]
  - Haemoglobin abnormal [Unknown]
  - White blood cell count abnormal [Unknown]
  - Platelet disorder [Unknown]
  - Blood creatinine abnormal [Unknown]
  - Alanine aminotransferase abnormal [Unknown]
  - Aspartate aminotransferase abnormal [Unknown]
  - Blood alkaline phosphatase abnormal [Unknown]
  - Hyperglycaemia [Unknown]
  - Nausea [Unknown]
  - Diarrhoea [Unknown]
  - Stomatitis [Unknown]
  - Gastritis [Unknown]
  - Mucosal inflammation [Unknown]
  - Hypotension [Unknown]
  - Thrombosis [Unknown]
  - Oedema [Unknown]
  - Dyspnoea [Unknown]
  - Dysuria [Unknown]
  - Sensory disturbance [Unknown]
  - Motor dysfunction [Unknown]
  - Altered state of consciousness [Unknown]
  - Cushing^s syndrome [Unknown]
  - Sjogren^s syndrome [Unknown]
  - Decreased appetite [Unknown]
  - Haemorrhage [Unknown]
  - Hepatotoxicity [Unknown]
  - Alopecia [Unknown]
